FAERS Safety Report 9727644 (Version 1)
Quarter: 2013Q4

REPORT INFORMATION
  Report Type: Report from Study
  Country: EC (occurrence: EC)
  Receive Date: 20131203
  Receipt Date: 20131203
  Transmission Date: 20140711
  Serious: Yes (Hospitalization)
  Sender: FDA-Public Use
  Company Number: PHHY2013EC140609

PATIENT
  Age: 88 Year
  Sex: Female

DRUGS (2)
  1. EXFORGE [Suspect]
     Indication: HYPERTENSION
     Dosage: 1 DF(160/5MG), QD
     Route: 048
     Dates: end: 20130911
  2. EXFORGE [Suspect]
     Dosage: UNK UKN(160/5MG), UNK
     Dates: start: 20131126

REACTIONS (7)
  - Gastric ulcer [Recovered/Resolved]
  - Gastric ulcer haemorrhage [Unknown]
  - Abdominal pain [Unknown]
  - Faeces discoloured [Unknown]
  - Hypertension [Recovered/Resolved]
  - Dizziness [Recovered/Resolved]
  - Pallor [Unknown]
